FAERS Safety Report 6210661-2 (Version None)
Quarter: 2009Q2

REPORT INFORMATION
  Report Type: 
  Country: None (occurrence: None)
  Receive Date: 20090527
  Receipt Date: 20090512
  Transmission Date: 20091009
  Serious: Yes (Death, Hospitalization)
  Sender: FDA-Public Use
  Company Number: 1-18433186

PATIENT
  Age: 52 Year
  Sex: Male

DRUGS (2)
  1. WARFARIN SODIUM [Suspect]
     Indication: DEEP VEIN THROMBOSIS
     Dosage: ORAL
     Route: 048
  2. ENOXAPARIN SODIUM [Suspect]
     Dosage: ORAL
     Route: 048

REACTIONS (19)
  - AGITATION [None]
  - CEREBRAL ARTERY EMBOLISM [None]
  - DEEP VEIN THROMBOSIS [None]
  - DELIRIUM [None]
  - DISEASE PROGRESSION [None]
  - ENDOCARDITIS NONINFECTIVE [None]
  - GANGRENE [None]
  - HEPARIN-INDUCED THROMBOCYTOPENIA [None]
  - HEPATIC STEATOSIS [None]
  - INADEQUATE ANALGESIA [None]
  - INTERNATIONAL NORMALISED RATIO INCREASED [None]
  - LIVER FUNCTION TEST ABNORMAL [None]
  - LYMPHADENOPATHY [None]
  - METASTASES TO LIVER [None]
  - NECROSIS [None]
  - PULMONARY EMBOLISM [None]
  - RENAL EMBOLISM [None]
  - RENAL FAILURE ACUTE [None]
  - SPLENIC EMBOLISM [None]
